FAERS Safety Report 5150340-6 (Version None)
Quarter: 2006Q4

REPORT INFORMATION
  Report Type: 
  Country: None (occurrence: None)
  Receive Date: 20061108
  Receipt Date: 20061030
  Transmission Date: 20070319
  Serious: Yes (Death)
  Sender: FDA-Public Use
  Company Number: 2006105174

PATIENT

DRUGS (2)
  1. LIPITOR [Suspect]
     Indication: LIPIDS INCREASED
     Dosage: ORAL
     Route: 048
  2. RISPERDAL [Suspect]

REACTIONS (1)
  - DRUG INTERACTION [None]
